FAERS Safety Report 4784673-X (Version None)
Quarter: 2005Q3

REPORT INFORMATION
  Report Type: 
  Country: None (occurrence: None)
  Receive Date: 20050930
  Receipt Date: 20050920
  Transmission Date: 20060218
  Serious: No
  Sender: FDA-Public Use
  Company Number: AU-MERCK-0509AUS00130M

PATIENT
  Age: 31 Year
  Sex: Female

DRUGS (4)
  1. PRINIVIL [Suspect]
     Indication: LEFT VENTRICULAR FAILURE
     Route: 048
  2. DIGOXIN [Concomitant]
     Indication: LEFT VENTRICULAR FAILURE
     Route: 065
  3. FUROSEMIDE [Concomitant]
     Indication: LEFT VENTRICULAR FAILURE
     Route: 065
  4. ASPIRIN [Concomitant]
     Indication: LEFT VENTRICULAR FAILURE
     Route: 065

REACTIONS (3)
  - CHORIOAMNIONITIS [None]
  - DRUG EXPOSURE DURING PREGNANCY [None]
  - OLIGOHYDRAMNIOS [None]
